FAERS Safety Report 5082360-4 (Version None)
Quarter: 2006Q3

REPORT INFORMATION
  Report Type: 
  Country: None (occurrence: None)
  Receive Date: 20060814
  Receipt Date: 20060802
  Transmission Date: 20061208
  Serious: Yes (Hospitalization)
  Sender: FDA-Public Use
  Company Number: 217821

PATIENT
  Age: 51 Year
  Sex: Female
  Weight: 51.2 kg

DRUGS (16)
  1. XOLAIR [Suspect]
     Indication: ASTHMA
     Dosage: 150 MG, 1/MONTH,  SUBCUTANEOUS
     Route: 058
     Dates: start: 20030725, end: 20050805
  2. PROTONIX [Concomitant]
  3. AZULFIDINE [Concomitant]
  4. DEHIDROBENZPERIDOL (DROPERIDOL) [Concomitant]
  5. SYNTHROID [Concomitant]
  6. ALEVE [Concomitant]
  7. TRAMADOL HCL [Concomitant]
  8. MAXAIR [Concomitant]
  9. ADVAIR DISKUS 100/50 [Concomitant]
  10. SINGULAIR [Concomitant]
  11. ZYRTEC [Concomitant]
  12. FLONASE [Concomitant]
  13. IPRATROPIUM (IPRATROPIUM BROMIDE) [Concomitant]
  14. ASPERCREME (TROLAMINE SALICYLATE) [Concomitant]
  15. FOLIC ACID [Concomitant]
  16. DITROPAN [Concomitant]

REACTIONS (25)
  - ACUTE SINUSITIS [None]
  - ALLERGIC GRANULOMATOUS ANGIITIS [None]
  - ARTHRALGIA [None]
  - ASTHMA [None]
  - BLOOD ALBUMIN DECREASED [None]
  - EOSINOPHILIA [None]
  - EOSINOPHILIC PNEUMONIA [None]
  - HAEMOGLOBIN DECREASED [None]
  - HILAR LYMPHADENOPATHY [None]
  - HYPOCHROMASIA [None]
  - LEGIONELLA INFECTION [None]
  - LUNG INFILTRATION [None]
  - LYMPHOCYTE PERCENTAGE DECREASED [None]
  - MICROCYTOSIS [None]
  - MOBILITY DECREASED [None]
  - MYCOPLASMA INFECTION [None]
  - OEDEMA PERIPHERAL [None]
  - PNEUMONIA PRIMARY ATYPICAL [None]
  - PULMONARY COCCIDIOIDES [None]
  - RHEUMATOID ARTHRITIS [None]
  - RHEUMATOID FACTOR POSITIVE [None]
  - RIFT VALLEY FEVER [None]
  - SKIN LACERATION [None]
  - STRESS [None]
  - WHITE BLOOD CELL COUNT INCREASED [None]
